FAERS Safety Report 8414545-0 (Version None)
Quarter: 2012Q2

REPORT INFORMATION
  Report Type: 
  Country: None (occurrence: None)
  Receive Date: 20120605
  Receipt Date: 20120525
  Transmission Date: 20120825
  Serious: No
  Sender: FDA-Public Use
  Company Number: US-ASTRAZENECA-2012SE34179

PATIENT
  Age: 44 Year
  Sex: Female
  Weight: 59 kg

DRUGS (5)
  1. SEROQUEL [Suspect]
     Indication: BIPOLAR I DISORDER
     Route: 048
  2. WARFARIN SODIUM [Concomitant]
     Indication: THROMBOSIS
  3. LITHIUM [Concomitant]
  4. METFORMIN HCL [Concomitant]
     Indication: DIABETES MELLITUS
  5. LANTUS SOLU START [Concomitant]
     Indication: DIABETES MELLITUS

REACTIONS (11)
  - CRYING [None]
  - DRUG WITHDRAWAL SYNDROME [None]
  - INSOMNIA [None]
  - COLD SWEAT [None]
  - OFF LABEL USE [None]
  - HOT FLUSH [None]
  - FEELING COLD [None]
  - BLOOD GLUCOSE INCREASED [None]
  - VOMITING [None]
  - IRRITABILITY [None]
  - INTENTIONAL DRUG MISUSE [None]
